FAERS Safety Report 24407754 (Version 1)
Quarter: 2024Q4

REPORT INFORMATION
  Report Type: Spontaneous
  Country: AL (occurrence: None)
  Receive Date: 20241007
  Receipt Date: 20241007
  Transmission Date: 20250115
  Serious: Yes (Hospitalization, Other)
  Sender: Public
  Company Number: None

PATIENT
  Age: 30 Year
  Sex: Female
  Weight: 54 kg

DRUGS (1)
  1. MONTELUKAST [Suspect]
     Active Substance: MONTELUKAST
     Indication: Bronchitis
     Dates: start: 20240815, end: 20241004

REACTIONS (12)
  - Loss of personal independence in daily activities [None]
  - Anxiety [None]
  - Sleep disorder [None]
  - Fatigue [None]
  - Irritability [None]
  - Chills [None]
  - Tremor [None]
  - Palpitations [None]
  - Heart rate irregular [None]
  - Gastrointestinal disorder [None]
  - Emotional distress [None]
  - Impaired quality of life [None]

NARRATIVE: CASE EVENT DATE: 20241005
